FAERS Safety Report 22162709 (Version 1)
Quarter: 2023Q1

REPORT INFORMATION
  Report Type: Spontaneous
  Country: US (occurrence: US)
  Receive Date: 20230331
  Receipt Date: 20230331
  Transmission Date: 20230418
  Serious: No
  Sender: FDA-Public Use
  Company Number: US-drreddys-SPO/USA/23/0160611

PATIENT
  Age: 46 Year
  Sex: Female

DRUGS (3)
  1. ZENATANE [Suspect]
     Active Substance: ISOTRETINOIN
     Indication: Periorbital dermatitis
     Route: 048
     Dates: start: 20221018
  2. ISOTRETINOIN [Concomitant]
     Active Substance: ISOTRETINOIN
     Indication: Periorbital dermatitis
     Route: 048
  3. ISOTRETINOIN [Concomitant]
     Active Substance: ISOTRETINOIN
     Route: 048

REACTIONS (1)
  - Drug effective for unapproved indication [Unknown]
